FAERS Safety Report 14507011 (Version 2)
Quarter: 2018Q1

REPORT INFORMATION
  Report Type: Spontaneous
  Country: AU (occurrence: AU)
  Receive Date: 20180208
  Receipt Date: 20180302
  Transmission Date: 20180509
  Serious: Yes (Death, Hospitalization)
  Sender: FDA-Public Use
  Company Number: AU-PFIZER INC-2018047598

PATIENT
  Age: 66 Year
  Sex: Female
  Weight: 79 kg

DRUGS (2)
  1. DENOSUMAB [Concomitant]
     Active Substance: DENOSUMAB
     Indication: BONE DISORDER
     Dosage: 120 MG, EVERY 4 WEEKS (MONTHLY)
     Route: 058
  2. PACLITAXEL. [Suspect]
     Active Substance: PACLITAXEL
     Indication: BREAST CANCER METASTATIC
     Dosage: 72.5 MG, WEEKLY
     Route: 042
     Dates: start: 20180119, end: 20180119

REACTIONS (2)
  - Neoplasm progression [Fatal]
  - Toxicity to various agents [Unknown]

NARRATIVE: CASE EVENT DATE: 20180129
